FAERS Safety Report 8510847-8 (Version None)
Quarter: 2012Q3

REPORT INFORMATION
  Report Type: 
  Country: None (occurrence: None)
  Receive Date: 20120716
  Receipt Date: 20120702
  Transmission Date: 20120928
  Serious: Yes (Other)
  Sender: FDA-Public Use
  Company Number: US-ELI_LILLY_AND_COMPANY-US201207000871

PATIENT
  Sex: Female

DRUGS (4)
  1. HUMULIN R [Suspect]
     Indication: DIABETES MELLITUS
     Dosage: UNK, UNKNOWN
  2. HUMALOG [Suspect]
     Indication: DIABETES MELLITUS
     Dosage: UNK, PRN
  3. HUMULIN N [Suspect]
     Dosage: 12 U, EACH MORNING
  4. HUMULIN N [Suspect]
     Dosage: 15 U, EACH EVENING

REACTIONS (7)
  - PRODUCTIVE COUGH [None]
  - ORAL MUCOSAL BLISTERING [None]
  - WHEEZING [None]
  - DRUG INEFFECTIVE [None]
  - DEHYDRATION [None]
  - BLOOD GLUCOSE INCREASED [None]
  - MALAISE [None]
